FAERS Safety Report 9547975 (Version 1)
Quarter: 2013Q3

REPORT INFORMATION
  Report Type: Spontaneous
  Country: SE (occurrence: None)
  Receive Date: 20130920
  Receipt Date: 20130920
  Transmission Date: 20140515
  Serious: Yes (Hospitalization, Disabling)
  Sender: FDA-Public Use
  Company Number: 201360629

PATIENT
  Age: 111 Year
  Sex: Male

DRUGS (5)
  1. FRAGMIN (DALTEPARIN SODIUM) SOLUTION FOR INJECTION [Suspect]
     Dosage: 2500 IU, 1X/DAY IN THE MORNING
     Dates: start: 20120329, end: 20120406
  2. CIPROFLOXACIN [Suspect]
     Dates: start: 20120329, end: 20120406
  3. BEHEPAN (CYANOCOBALAMIN) [Concomitant]
  4. LOSARTAN (LOSARTAN) [Concomitant]
  5. LEVAXIN (LEVOTHYROXINE SODIUM) [Concomitant]

REACTIONS (2)
  - Tendon rupture [None]
  - Gait disturbance [None]
